FAERS Safety Report 24538160 (Version 2)
Quarter: 2024Q4

REPORT INFORMATION
  Report Type: Spontaneous
  Country: US (occurrence: US)
  Receive Date: 20241023
  Receipt Date: 20241110
  Transmission Date: 20250114
  Serious: No
  Sender: JOHNSON AND JOHNSON
  Company Number: US-JNJFOC-20241011304

PATIENT
  Sex: Male
  Weight: 71.278 kg

DRUGS (24)
  1. OPSUMIT [Suspect]
     Active Substance: MACITENTAN
     Indication: Pulmonary arterial hypertension
     Route: 048
  2. ORENITRAM [Suspect]
     Active Substance: TREPROSTINIL
     Indication: Pulmonary arterial hypertension
     Route: 048
     Dates: start: 20150310
  3. LUMIGAN [Concomitant]
     Active Substance: BIMATOPROST
  4. ANASTROZOLE [Concomitant]
     Active Substance: ANASTROZOLE
  5. AMOXICILLIN [Concomitant]
     Active Substance: AMOXICILLIN
  6. SPIRIVA [Concomitant]
     Active Substance: TIOTROPIUM BROMIDE MONOHYDRATE
  7. TADALAFIL [Concomitant]
     Active Substance: TADALAFIL
  8. ALBUTEROL SULFATE [Concomitant]
     Active Substance: ALBUTEROL SULFATE
  9. CALCIUM\CHOLECALCIFEROL [Concomitant]
     Active Substance: CALCIUM\CHOLECALCIFEROL
  10. VITAMIN D2 [Concomitant]
     Active Substance: ERGOCALCIFEROL
  11. METOLAZONE [Concomitant]
     Active Substance: METOLAZONE
  12. ELIQUIS [Concomitant]
     Active Substance: APIXABAN
  13. JANUVIA [Concomitant]
     Active Substance: SITAGLIPTIN PHOSPHATE
  14. METOPROLOL SUCCINATE [Concomitant]
     Active Substance: METOPROLOL SUCCINATE
  15. SIMVASTATIN [Concomitant]
     Active Substance: SIMVASTATIN
  16. ASPIRIN [Concomitant]
     Active Substance: ASPIRIN
  17. VITAJOY MELATONIN [Concomitant]
  18. TESTOSTERONE [Concomitant]
     Active Substance: TESTOSTERONE
  19. FUROSEMIDE [Concomitant]
     Active Substance: FUROSEMIDE
  20. FARXIGA [Concomitant]
     Active Substance: DAPAGLIFLOZIN PROPANEDIOL
  21. FERROUS SULFATE [Concomitant]
     Active Substance: FERROUS SULFATE
  22. TYLENOL [Concomitant]
     Active Substance: ACETAMINOPHEN
  23. VITAMIN D3 [Concomitant]
     Active Substance: CHOLECALCIFEROL
  24. SYMBICORT [Concomitant]
     Active Substance: BUDESONIDE\FORMOTEROL FUMARATE DIHYDRATE

REACTIONS (1)
  - Therapy cessation [Unknown]
